FAERS Safety Report 10278446 (Version 2)
Quarter: 2014Q3

REPORT INFORMATION
  Report Type: Spontaneous
  Country: US (occurrence: US)
  Receive Date: 20140704
  Receipt Date: 20140723
  Transmission Date: 20150326
  Serious: Yes (Hospitalization, Other)
  Sender: FDA-Public Use
  Company Number: US-009507513-1406USA012273

PATIENT
  Age: 51 Year
  Sex: Female

DRUGS (1)
  1. FOSAMAX [Suspect]
     Active Substance: ALENDRONATE SODIUM
     Indication: OSTEOPOROSIS
     Dosage: UNK UNK, WEEKLY DOSE
     Route: 048
     Dates: start: 2007

REACTIONS (3)
  - Sequestrectomy [Recovered/Resolved]
  - Osteonecrosis of jaw [Recovered/Resolved]
  - Actinomycosis [Recovered/Resolved]
